FAERS Safety Report 4391647-X (Version None)
Quarter: 2004Q3

REPORT INFORMATION
  Report Type: 
  Country: None (occurrence: None)
  Receive Date: 20040701
  Receipt Date: 20040611
  Transmission Date: 20050211
  Serious: Yes (Hospitalization, Other)
  Sender: FDA-Public Use
  Company Number: USA040669964

PATIENT
  Age: 65 Year
  Sex: Male
  Weight: 91 kg

DRUGS (19)
  1. HUMULIN R [Suspect]
     Dosage: 70 U DAY
  2. HUMULIN R [Suspect]
     Dosage: 44 U/1 DAY
  3. HUMULIN N [Suspect]
  4. HUMALOG [Suspect]
     Dosage: 12 U DAY
  5. HUMALOG [Suspect]
     Dosage: 8 U/1 DAY
  6. NOVOLIN N [Concomitant]
  7. TIMOPTIC [Concomitant]
  8. DORZOLAMIDE [Concomitant]
  9. HYDROXYPROPYL METHYLCELLULOSE [Concomitant]
  10. ASPIRIN [Concomitant]
  11. ALLOPURINOL [Concomitant]
  12. SYNTHROID [Concomitant]
  13. TEARISOL [Concomitant]
  14. DIGOXIN [Concomitant]
  15. BUMETANIDE [Concomitant]
  16. HYDROCHLOROTHIAZIDE [Concomitant]
  17. ACCUPRIL [Concomitant]
  18. COUMADIN [Concomitant]
  19. RABEPRAZOLE SODIUM [Concomitant]

REACTIONS (7)
  - ARRHYTHMIA [None]
  - BLOOD GLUCOSE INCREASED [None]
  - GLAUCOMA [None]
  - HYPERTENSION [None]
  - PHARMACEUTICAL PRODUCT COMPLAINT [None]
  - RENAL CYST [None]
  - TRIPLE VESSEL BYPASS GRAFT [None]
